FAERS Safety Report 5372226-4 (Version None)
Quarter: 2007Q2

REPORT INFORMATION
  Report Type: 
  Country: None (occurrence: None)
  Receive Date: 20070627
  Receipt Date: 20070623
  Transmission Date: 20071010
  Serious: Yes (Hospitalization)
  Sender: FDA-Public Use
  Company Number: D0053739B

PATIENT
  Sex: Female

DRUGS (1)
  1. HYCAMTIN [Suspect]
     Indication: CERVIX CARCINOMA
     Route: 065

REACTIONS (3)
  - BLOOD CREATINE INCREASED [None]
  - DEEP VEIN THROMBOSIS [None]
  - RENAL FAILURE [None]
